FAERS Safety Report 9444734 (Version 3)
Quarter: 2013Q4

REPORT INFORMATION
  Report Type: Report from Study
  Country: DE (occurrence: DE)
  Receive Date: 20130807
  Receipt Date: 20131025
  Transmission Date: 20140711
  Serious: Yes (Hospitalization)
  Sender: FDA-Public Use
  Company Number: PHHO2013DE010106

PATIENT
  Sex: 0

DRUGS (7)
  1. EVEROLIMUS [Suspect]
     Indication: NON-SMALL CELL LUNG CANCER
     Dosage: 25 MG, UNK
     Route: 048
     Dates: start: 20130607, end: 20130724
  2. EVEROLIMUS [Suspect]
     Dosage: 25 MG, UNK
     Route: 048
     Dates: end: 20130921
  3. SORAFENIB [Suspect]
     Indication: NON-SMALL CELL LUNG CANCER
     Dosage: 800 MG, UNK
     Route: 048
     Dates: start: 20130702, end: 20130724
  4. SORAFENIB [Suspect]
     Dosage: 800 MG, UNK
     Route: 048
     Dates: end: 20130921
  5. DOSS [Concomitant]
     Indication: ANTICOAGULANT THERAPY
     Dosage: 100
     Route: 048
  6. RAMIPRIL [Concomitant]
     Indication: HYPERTENSION
     Dosage: 2.5 MG, UNK
     Route: 048
     Dates: start: 20130910
  7. ZOMETA [Concomitant]
     Indication: BONE DISORDER
     Dosage: 4 MG, BID
     Dates: start: 20130708

REACTIONS (1)
  - Anal fistula [Recovered/Resolved]
